FAERS Safety Report 6411092-2 (Version None)
Quarter: 2009Q4

REPORT INFORMATION
  Report Type: 
  Country: None (occurrence: None)
  Receive Date: 20091020
  Receipt Date: 20091014
  Transmission Date: 20100525
  Serious: Yes (Other)
  Sender: FDA-Public Use
  Company Number: CERZ-1000958

PATIENT
  Age: 52 Year
  Sex: Male
  Weight: 102 kg

DRUGS (2)
  1. CEREZYME [Suspect]
     Indication: GAUCHER'S DISEASE
     Dosage: 2000 U, 1X/W, INTRAVENOUS
     Route: 042
     Dates: start: 19970101
  2. NIFEDIPIN (NIFEDIPINE) [Concomitant]

REACTIONS (1)
  - RENAL NEOPLASM [None]
